FAERS Safety Report 17053596 (Version 1)
Quarter: 2019Q4

REPORT INFORMATION
  Report Type: Spontaneous
  Country: SE (occurrence: SE)
  Receive Date: 20191120
  Receipt Date: 20191120
  Transmission Date: 20200122
  Serious: Yes (Other)
  Sender: FDA-Public Use
  Company Number: SE-MYLANLABS-2019M1110407

PATIENT
  Age: 29 Year
  Sex: Male

DRUGS (5)
  1. CETUXIMAB. [Concomitant]
     Active Substance: CETUXIMAB
     Dosage: 850 MG ^VARANNAN VECKA^
     Route: 042
     Dates: start: 20190204, end: 20190415
  2. FLUOROURACIL. [Concomitant]
     Active Substance: FLUOROURACIL
     Route: 042
     Dates: start: 20190204, end: 20190415
  3. IRINOTECAN [Concomitant]
     Active Substance: IRINOTECAN
     Route: 042
     Dates: start: 20190204, end: 20190415
  4. OXALIPLATIN MYLAN [Suspect]
     Active Substance: OXALIPLATIN
     Indication: RECTAL CANCER METASTATIC
     Dosage: 1 DOSAGE FORM, BIWEEKLY
     Route: 042
     Dates: start: 20181220, end: 20190116
  5. OXALIPLATIN MYLAN [Suspect]
     Active Substance: OXALIPLATIN
     Dosage: 215 MILLIGRAM
     Route: 042
     Dates: start: 20181108, end: 20181129

REACTIONS (1)
  - Ophthalmoplegia [Not Recovered/Not Resolved]

NARRATIVE: CASE EVENT DATE: 2019
